FAERS Safety Report 7799267-1 (Version None)
Quarter: 2011Q4

REPORT INFORMATION
  Report Type: 
  Country: None (occurrence: None)
  Receive Date: 20111006
  Receipt Date: 20110325
  Transmission Date: 20120403
  Serious: No
  Sender: FDA-Public Use
  Company Number: US-GLAXOSMITHKLINE-A0920082A

PATIENT

DRUGS (1)
  1. DUAC [Suspect]
     Route: 061

REACTIONS (1)
  - ERYTHEMA [None]
